FAERS Safety Report 24275377 (Version 1)
Quarter: 2024Q3

REPORT INFORMATION
  Report Type: Spontaneous
  Country: US (occurrence: US)
  Receive Date: 20240903
  Receipt Date: 20240903
  Transmission Date: 20241017
  Serious: No
  Sender: ROCHE
  Company Number: US-ROCHE-10000071066

PATIENT
  Sex: Female

DRUGS (1)
  1. ALECENSA [Suspect]
     Active Substance: ALECTINIB HYDROCHLORIDE
     Indication: Product used for unknown indication
     Dosage: 3 TABS OF 150 MG TWICE A DAY.
     Route: 048

REACTIONS (3)
  - Diarrhoea [Unknown]
  - Asthenia [Unknown]
  - Vitreous floaters [Unknown]
